FAERS Safety Report 11707172 (Version 1)
Quarter: 2015Q4

REPORT INFORMATION
  Report Type: Spontaneous
  Country: US (occurrence: US)
  Receive Date: 20151106
  Receipt Date: 20151106
  Transmission Date: 20160304
  Serious: No
  Sender: FDA-Public Use
  Company Number: US-CELGENEUS-USA-2015105645

PATIENT
  Sex: Male

DRUGS (1)
  1. OTEZLA [Suspect]
     Active Substance: APREMILAST
     Indication: PSORIASIS
     Dosage: 60 MILLIGRAM
     Route: 048
     Dates: start: 20150630

REACTIONS (6)
  - Optic nerve disorder [Unknown]
  - Gout [Recovered/Resolved]
  - Emotional disorder [Unknown]
  - Headache [Unknown]
  - Impatience [Unknown]
  - Intraocular pressure increased [Unknown]
